FAERS Safety Report 11082439 (Version 2)
Quarter: 2015Q3

REPORT INFORMATION
  Report Type: Spontaneous
  Country: JP (occurrence: JP)
  Receive Date: 20150501
  Receipt Date: 20150722
  Transmission Date: 20151125
  Serious: Yes (Other)
  Sender: FDA-Public Use
  Company Number: JP-TEVA-558494ISR

PATIENT
  Age: 69 Year
  Sex: Male

DRUGS (3)
  1. RECOMODULIN [Suspect]
     Active Substance: THROMBOMODULIN ALFA
     Indication: DISSEMINATED INTRAVASCULAR COAGULATION
     Dosage: 23040 UNITS/DAY
     Route: 042
     Dates: start: 20141122, end: 20141125
  2. VIDAZA [Concomitant]
     Active Substance: AZACITIDINE
     Indication: MYELODYSPLASTIC SYNDROME
     Dosage: 124 MILLIGRAM DAILY;
     Route: 042
     Dates: start: 20141105, end: 20141111
  3. FILGRASTIM BS INJ. ^NK^ [Suspect]
     Active Substance: FILGRASTIM
     Indication: NEUTROPENIA
     Dosage: 45 MICROGRAM/M2 DAILY;
     Route: 058
     Dates: start: 20141119, end: 20141125

REACTIONS (1)
  - Disseminated intravascular coagulation [Not Recovered/Not Resolved]

NARRATIVE: CASE EVENT DATE: 20141122
